FAERS Safety Report 5794553-9 (Version None)
Quarter: 2008Q2

REPORT INFORMATION
  Report Type: 
  Country: None (occurrence: None)
  Receive Date: 20080625
  Receipt Date: 20080616
  Transmission Date: 20081010
  Serious: Yes (Life-Threatening)
  Sender: FDA-Public Use
  Company Number: GXKR2008GB05570

PATIENT
  Age: 46 Year
  Sex: Female
  Weight: 60 kg

DRUGS (13)
  1. WARFARIN SODIUM [Suspect]
     Indication: MESENTERIC ARTERIOSCLEROSIS
  2. ACETYLSALICYLIC ACID SRT [Concomitant]
  3. CODEINE SUL TAB [Concomitant]
  4. ESOMEPRAZOLE MAGNESIUM [Concomitant]
  5. FERROUS FUMARATE [Concomitant]
  6. FLUOXETINE [Concomitant]
  7. FORCEVAL (AMINO ACIDS NOS, ELECTROLYTES NOS, FERROUS FUMARATE, NICOTIN [Concomitant]
  8. FUROSEMIDE [Concomitant]
  9. GABAPENTIN [Concomitant]
  10. HUMALOG [Concomitant]
  11. HUMULIN (INSULIN HUMAN, INSULIN ISOPHANE, HUMAN BIOSYNTHETIC) [Concomitant]
  12. HYOSCINE HBR HYT [Concomitant]
  13. INFUMORPH [Concomitant]

REACTIONS (5)
  - DRUG INTERACTION [None]
  - GENITAL HAEMORRHAGE [None]
  - INTERNATIONAL NORMALISED RATIO INCREASED [None]
  - RECTAL HAEMORRHAGE [None]
  - VAGINAL HAEMORRHAGE [None]
